FAERS Safety Report 7507087-8 (Version None)
Quarter: 2011Q2

REPORT INFORMATION
  Report Type: 
  Country: None (occurrence: None)
  Receive Date: 20110526
  Receipt Date: 20110520
  Transmission Date: 20111010
  Serious: Yes (Hospitalization)
  Sender: FDA-Public Use
  Company Number: JP-CEPHALON-2011001446

PATIENT
  Age: 52 Year
  Sex: Female

DRUGS (11)
  1. TRICHLORMETHIAZIDE [Concomitant]
     Dates: start: 20110303, end: 20110317
  2. FUROSEMIDE [Concomitant]
     Dates: start: 20110303, end: 20110317
  3. DENOPAMINE [Concomitant]
     Dates: start: 20110303, end: 20110317
  4. FAMOTIDINE [Concomitant]
     Dates: start: 20110303, end: 20110317
  5. ATORVASTATIN CALCIUM [Concomitant]
     Dates: start: 20110303, end: 20110317
  6. CARVEDILOL [Concomitant]
     Dates: start: 20110303, end: 20110317
  7. BENDAMUSTINE HCL [Suspect]
     Indication: B-CELL LYMPHOMA
     Route: 042
     Dates: start: 20110303, end: 20110304
  8. SPIRONOLACTONE [Concomitant]
     Dates: start: 20110303, end: 20110317
  9. IMIDAPRIL [Concomitant]
     Dates: start: 20110303, end: 20110317
  10. PIMOBENDAN [Concomitant]
     Dates: start: 20110303, end: 20110317
  11. RITUXIMAB [Concomitant]
     Indication: B-CELL LYMPHOMA
     Dates: start: 20110224, end: 20110224

REACTIONS (3)
  - HYPONATRAEMIA [None]
  - RENAL FAILURE [None]
  - HYPERURICAEMIA [None]
